FAERS Safety Report 20326740 (Version 4)
Quarter: 2022Q2

REPORT INFORMATION
  Report Type: Spontaneous
  Country: CA (occurrence: CA)
  Receive Date: 20220112
  Receipt Date: 20220415
  Transmission Date: 20220721
  Serious: Yes (Other)
  Sender: FDA-Public Use
  Company Number: CA-BAXTER-2022BAX000384

PATIENT
  Age: 52 Year
  Sex: Female
  Weight: 98 kg

DRUGS (42)
  1. CYCLOPHOSPHAMIDE [Suspect]
     Active Substance: CYCLOPHOSPHAMIDE
     Indication: Breast cancer stage II
     Dosage: DOSAGE FORM: NOT SPECIFIED, CYCLICAL
     Route: 065
  2. AFINITOR [Suspect]
     Active Substance: EVEROLIMUS
     Indication: Breast cancer metastatic
     Dosage: DOSAGE FORM: TABLETS
     Route: 065
  3. AFINITOR [Suspect]
     Active Substance: EVEROLIMUS
     Indication: Metastases to liver
     Dosage: DOSAGE FORM: TABLETS
     Route: 065
  4. CARBOPLATIN [Suspect]
     Active Substance: CARBOPLATIN
     Indication: Breast cancer metastatic
     Dosage: DOSAGE FORM: SOLUTION INTRAVENOUS
     Route: 065
  5. CARBOPLATIN [Suspect]
     Active Substance: CARBOPLATIN
     Indication: Metastases to liver
     Dosage: DOSAGE FORM: SOLUTION INTRAVENOUS
     Route: 042
  6. CARBOPLATIN [Suspect]
     Active Substance: CARBOPLATIN
     Route: 042
  7. EXEMESTANE [Suspect]
     Active Substance: EXEMESTANE
     Indication: Breast cancer metastatic
     Dosage: DOSAGE FORM: TABLETS
     Route: 065
  8. EXEMESTANE [Suspect]
     Active Substance: EXEMESTANE
     Indication: Metastases to liver
     Dosage: DOSAGE FORM: TABLETS
     Route: 065
  9. EXEMESTANE [Suspect]
     Active Substance: EXEMESTANE
     Route: 065
  10. EXEMESTANE [Suspect]
     Active Substance: EXEMESTANE
     Route: 065
  11. FLUOROURACIL [Suspect]
     Active Substance: FLUOROURACIL
     Indication: Breast cancer stage II
     Dosage: DOSAGE FORM: NOT SPECIFIED, CYCLICAL
     Route: 065
  12. LETROZOLE [Suspect]
     Active Substance: LETROZOLE
     Indication: Breast cancer metastatic
     Dosage: DOSAGE FORM: TABLETS
     Route: 065
  13. LETROZOLE [Suspect]
     Active Substance: LETROZOLE
     Indication: Metastases to liver
     Dosage: DOSAGE FORM: TABLETS
     Route: 065
  14. PACLITAXEL [Suspect]
     Active Substance: PACLITAXEL
     Indication: Breast cancer metastatic
     Dosage: DOSAGE FORM: LIQUID INTRAVENOUS
     Route: 042
  15. PACLITAXEL [Suspect]
     Active Substance: PACLITAXEL
     Indication: Metastases to bone
     Route: 042
  16. PACLITAXEL [Suspect]
     Active Substance: PACLITAXEL
     Indication: Metastases to liver
     Route: 042
  17. EPIRUBICIN HYDROCHLORIDE [Suspect]
     Active Substance: EPIRUBICIN HYDROCHLORIDE
     Indication: Breast cancer stage II
     Dosage: CYCLICAL; DOSAGE FORM: SOLUTION INTRAVENOUS
     Route: 065
  18. TAMOXIFEN [Suspect]
     Active Substance: TAMOXIFEN
     Indication: Breast cancer metastatic
     Dosage: DOSAGE FORM: TABLETS
     Route: 065
  19. TAMOXIFEN [Suspect]
     Active Substance: TAMOXIFEN
     Indication: Breast cancer stage II
     Route: 065
  20. TAMOXIFEN [Suspect]
     Active Substance: TAMOXIFEN
     Indication: Metastases to liver
  21. TAXOL [Suspect]
     Active Substance: PACLITAXEL
     Indication: Metastases to liver
     Dosage: DOSAGE FORM: SOLUTION INTRAVENOUS
     Route: 065
  22. TAXOL [Suspect]
     Active Substance: PACLITAXEL
     Indication: Breast cancer metastatic
  23. TAXOTERE [Suspect]
     Active Substance: DOCETAXEL
     Indication: Metastases to liver
     Dosage: DOSAGE FORM: SOLUTION INTRAVENOUS, CYCLICAL
     Route: 042
  24. TAXOTERE [Suspect]
     Active Substance: DOCETAXEL
     Indication: Breast cancer metastatic
     Dosage: DOSAGE FORM: SOLUTION INTRAVENOUS
     Route: 065
  25. TAXOTERE [Suspect]
     Active Substance: DOCETAXEL
     Route: 042
  26. XELODA [Suspect]
     Active Substance: CAPECITABINE
     Indication: Metastases to liver
     Dosage: DOSAGE FORM: TABLETS, CYCLICAL
     Route: 048
  27. XELODA [Suspect]
     Active Substance: CAPECITABINE
     Indication: Breast cancer metastatic
  28. EPIRUBICIN HYDROCHLORIDE [Suspect]
     Active Substance: EPIRUBICIN HYDROCHLORIDE
     Indication: Breast cancer stage II
     Dosage: DOSAGE FORM: SOLUTION INTRAVENOUS
     Route: 042
  29. TAMOXIFEN CITRATE [Suspect]
     Active Substance: TAMOXIFEN CITRATE
     Indication: Metastases to liver
     Route: 048
  30. TAMOXIFEN CITRATE [Suspect]
     Active Substance: TAMOXIFEN CITRATE
     Indication: Breast cancer stage II
     Route: 048
  31. TAMOXIFEN CITRATE [Suspect]
     Active Substance: TAMOXIFEN CITRATE
     Indication: Breast cancer metastatic
  32. CAPECITABINE [Suspect]
     Active Substance: CAPECITABINE
     Indication: Metastases to liver
     Dosage: DOSAGE FORM: NOT SPECIFIED
     Route: 065
  33. CAPECITABINE [Suspect]
     Active Substance: CAPECITABINE
     Indication: Breast cancer metastatic
     Route: 065
  34. ACETAMINOPHEN [Concomitant]
     Active Substance: ACETAMINOPHEN
     Indication: Product used for unknown indication
     Dosage: DOSAGE FORM: NOT SPECIFIED
     Route: 048
  35. CANNABIDIOL [Concomitant]
     Active Substance: CANNABIDIOL
     Indication: Product used for unknown indication
     Route: 048
  36. HYDROCHLOROTHIAZIDE [Concomitant]
     Active Substance: HYDROCHLOROTHIAZIDE
     Indication: Product used for unknown indication
     Dosage: DOSAGE FORM: TABLETS
     Route: 048
  37. HYDROMORPHONE [Concomitant]
     Active Substance: HYDROMORPHONE
     Indication: Product used for unknown indication
     Dosage: DOSAGE FORM: NOT SPECIFIED
     Route: 048
  38. MAGNESIUM [Concomitant]
     Active Substance: MAGNESIUM
     Indication: Product used for unknown indication
     Dosage: DOSAGE FORM: NOT SPECIFIED
     Route: 048
  39. OLMESARTAN MEDOXOMIL [Concomitant]
     Active Substance: OLMESARTAN MEDOXOMIL
     Indication: Product used for unknown indication
     Route: 048
  40. RIVAROXABAN [Concomitant]
     Active Substance: RIVAROXABAN
     Indication: Product used for unknown indication
     Route: 048
  41. TYLENOL WITH CODEINE [Concomitant]
     Active Substance: ACETAMINOPHEN\CODEINE PHOSPHATE
     Indication: Product used for unknown indication
     Route: 048
  42. TYLENOL [Concomitant]
     Active Substance: ACETAMINOPHEN
     Indication: Product used for unknown indication
     Dosage: DOSAGE FORM: NOT SPECIFIED
     Route: 065

REACTIONS (18)
  - Asthma [Unknown]
  - Breast cancer metastatic [Unknown]
  - Drug ineffective [Unknown]
  - Skin exfoliation [Unknown]
  - Device related thrombosis [Unknown]
  - Metastases to liver [Unknown]
  - Metastases to bone [Unknown]
  - Heart rate irregular [Unknown]
  - Chest pain [Unknown]
  - Diarrhoea [Unknown]
  - Drug hypersensitivity [Unknown]
  - Nail disorder [Unknown]
  - Nausea [Unknown]
  - Neuropathy peripheral [Unknown]
  - Paraesthesia [Unknown]
  - Rash [Unknown]
  - Vomiting [Unknown]
  - Neoplasm progression [Unknown]
